FAERS Safety Report 22068103 (Version 1)
Quarter: 2023Q1

REPORT INFORMATION
  Report Type: Spontaneous
  Country: US (occurrence: US)
  Receive Date: 20230307
  Receipt Date: 20230307
  Transmission Date: 20230418
  Serious: Yes (Hospitalization, Other)
  Sender: FDA-Public Use
  Company Number: US-ROCHE-1973193

PATIENT
  Age: 49 Year
  Sex: Male
  Weight: 98.972 kg

DRUGS (20)
  1. CLONAZEPAM [Suspect]
     Active Substance: CLONAZEPAM
     Indication: Product used for unknown indication
     Dates: start: 201706
  2. OCREVUS [Suspect]
     Active Substance: OCRELIZUMAB
     Indication: Relapsing multiple sclerosis
     Dosage: 1 TIMES IN 6 MONTHS
     Dates: start: 20170615
  3. OCREVUS [Suspect]
     Active Substance: OCRELIZUMAB
     Indication: Relapsing multiple sclerosis
     Dosage: ONCE IN EVERY 6MONTHS, FIRST HALF OF INITIAL SPLIT DOSE
     Route: 042
     Dates: start: 20170616, end: 20170616
  4. OCREVUS [Suspect]
     Active Substance: OCRELIZUMAB
     Indication: Relapsing multiple sclerosis
     Dosage: (SECOND HALF OF INITIAL SPLIT DOSE)
     Route: 042
     Dates: start: 20170630, end: 20170630
  5. ZOFRAN [Concomitant]
     Active Substance: ONDANSETRON HYDROCHLORIDE
  6. CIPROFLOXACIN [Concomitant]
     Active Substance: CIPROFLOXACIN
  7. SERTRALINE [Concomitant]
     Active Substance: SERTRALINE HYDROCHLORIDE
  8. TAMSULOSIN [Concomitant]
     Active Substance: TAMSULOSIN
  9. ATORVASTATIN [Concomitant]
     Active Substance: ATORVASTATIN
  10. FOLIC ACID [Concomitant]
     Active Substance: FOLIC ACID
  11. DIETARY SUPPLEMENT\UBIDECARENONE [Concomitant]
     Active Substance: DIETARY SUPPLEMENT\UBIDECARENONE
  12. POLYETHYLENE GLYCOLS [Concomitant]
     Active Substance: POLYETHYLENE GLYCOLS
  13. SENNA [Concomitant]
     Active Substance: SENNA LEAF\SENNOSIDES\SENNOSIDES A AND B
  14. GABAPENTIN [Concomitant]
     Active Substance: GABAPENTIN
  15. BACLOFEN [Concomitant]
     Active Substance: BACLOFEN
  16. DRONABINOL [Concomitant]
     Active Substance: DRONABINOL
  17. OXYCODONE [Concomitant]
     Active Substance: OXYCODONE
  18. TEMAZEPAM [Concomitant]
     Active Substance: TEMAZEPAM
  19. ASPIRIN [Concomitant]
     Active Substance: ASPIRIN
  20. MINOCYCLINE [Concomitant]
     Active Substance: MINOCYCLINE HYDROCHLORIDE

REACTIONS (17)
  - Urinary tract infection [Recovered/Resolved]
  - Urinary tract infection [Not Recovered/Not Resolved]
  - Hallucination [Unknown]
  - Dyspnoea [Recovered/Resolved]
  - Heart rate increased [Recovered/Resolved]
  - Nausea [Recovered/Resolved]
  - Nausea [Recovered/Resolved]
  - Flushing [Recovered/Resolved]
  - Skin discolouration [Recovered/Resolved]
  - Dizziness [Recovered/Resolved]
  - Cough [Not Recovered/Not Resolved]
  - Acute respiratory failure [Unknown]
  - Anaemia [Unknown]
  - Malnutrition [Unknown]
  - Normocytic anaemia [Unknown]
  - Respiratory failure [Unknown]
  - Wound [Unknown]

NARRATIVE: CASE EVENT DATE: 20170701
